FAERS Safety Report 25591008 (Version 1)
Quarter: 2025Q3

REPORT INFORMATION
  Report Type: Spontaneous
  Country: IN (occurrence: IN)
  Receive Date: 20250722
  Receipt Date: 20250722
  Transmission Date: 20251021
  Serious: Yes (Other)
  Sender: PFIZER
  Company Number: IN-PFIZER INC-PV202400038038

PATIENT
  Age: 50 Year
  Sex: Male

DRUGS (3)
  1. LORLATINIB [Suspect]
     Active Substance: LORLATINIB
     Indication: Lung neoplasm malignant
     Dosage: 100 MG, 1X/DAY
     Route: 048
     Dates: start: 202401
  2. LORLATINIB [Suspect]
     Active Substance: LORLATINIB
     Dosage: 50MG, OD
     Route: 048
  3. LORLATINIB [Suspect]
     Active Substance: LORLATINIB
     Dosage: 100 MG, OD
     Route: 048

REACTIONS (2)
  - Hypothyroidism [Unknown]
  - Hypertriglyceridaemia [Unknown]
